FAERS Safety Report 7641973-3 (Version None)
Quarter: 2011Q3

REPORT INFORMATION
  Report Type: 
  Country: None (occurrence: None)
  Receive Date: 20110728
  Receipt Date: 20110719
  Transmission Date: 20111222
  Serious: Yes (Other)
  Sender: FDA-Public Use
  Company Number: GB-UCBSA-033794

PATIENT
  Sex: Male

DRUGS (9)
  1. HALOPERIDOL [Concomitant]
     Dosage: 2MG/ML, 1 ML BD 0.7 ML EVENING
  2. CEFACLOR [Concomitant]
     Dosage: SUSPENSION 125/5ML
  3. GLYCOPYRROLATE INJECTION, USP [Concomitant]
  4. KEPPRA [Suspect]
  5. DOMPERIDONE [Concomitant]
     Dosage: 5MG/5ML
  6. OMEPRAZOLE [Concomitant]
  7. CLOBAZAM [Concomitant]
     Dosage: 10 ML AT LUNCH AND 1.25 IN EVENING
  8. KEPPRA [Suspect]
     Dosage: 100 MG/ML
  9. VALPROATE SODIUM [Concomitant]
     Dosage: LIQUID

REACTIONS (1)
  - EPILEPSY [None]
